FAERS Safety Report 18653651 (Version 1)
Quarter: 2020Q4

REPORT INFORMATION
  Report Type: Spontaneous
  Country: US (occurrence: US)
  Receive Date: 20201222
  Receipt Date: 20201222
  Transmission Date: 20210114
  Serious: No
  Sender: FDA-Public Use
  Company Number: None

PATIENT
  Age: 69 Year
  Sex: Female

DRUGS (1)
  1. TASIGNA [Suspect]
     Active Substance: NILOTINIB
     Route: 048
     Dates: start: 202011

REACTIONS (5)
  - Night sweats [None]
  - Pyrexia [None]
  - Abdominal pain [None]
  - Hepatic enzyme increased [None]
  - Fatigue [None]

NARRATIVE: CASE EVENT DATE: 20201222
